FAERS Safety Report 10028045 (Version 1)
Quarter: 2014Q1

REPORT INFORMATION
  Report Type: Report from Study
  Country: FR (occurrence: None)
  Receive Date: 20140304
  Receipt Date: 20140304
  Transmission Date: 20141002
  Serious: Yes (Hospitalization)
  Sender: FDA-Public Use
  Company Number: KAD201402-000243

PATIENT
  Age: 76 Year
  Sex: Male
  Weight: 70.3 kg

DRUGS (12)
  1. RIBAVIRIN [Suspect]
     Route: 048
     Dates: start: 20131028
  2. SOFOSBUVIR [Suspect]
     Route: 048
     Dates: start: 20131028
  3. AVLOCARDYL [Concomitant]
  4. ALDACTONE (SPIRONOLACTONE) [Concomitant]
  5. PERMIXON [Concomitant]
  6. OMEXEL [Concomitant]
  7. ANTIHEMOPHILIC FACTOR [Concomitant]
  8. DAFALGAN [Concomitant]
  9. NERISONE [Concomitant]
  10. HOMEOPATIC COUGH SYRUP (HOMEOPATIC COUGH SYRUP) [Concomitant]
  11. LASILIX (FUROSEMIDE) [Concomitant]
  12. LEDIPASVIR [Suspect]

REACTIONS (6)
  - Ascites [None]
  - Oedema peripheral [None]
  - Bronchitis [None]
  - Thrombocytopenia [None]
  - Purpura [None]
  - Palmar-plantar erythrodysaesthesia syndrome [None]
